FAERS Safety Report 9602478 (Version 1)
Quarter: 2013Q4

REPORT INFORMATION
  Report Type: Spontaneous
  Country: GB (occurrence: GB)
  Receive Date: 20131007
  Receipt Date: 20131007
  Transmission Date: 20140711
  Serious: Yes (Other)
  Sender: FDA-Public Use
  Company Number: GB-009507513-1310GBR000043

PATIENT
  Sex: Female

DRUGS (2)
  1. GONADOTROPIN, CHORIONIC [Suspect]
     Indication: INFERTILITY
  2. GONADOTROPIN, CHORIONIC [Suspect]
     Indication: POLYCYSTIC OVARIES

REACTIONS (2)
  - Abortion spontaneous [Unknown]
  - Maternal exposure before pregnancy [Recovered/Resolved]
